FAERS Safety Report 22924757 (Version 2)
Quarter: 2023Q4

REPORT INFORMATION
  Report Type: Spontaneous
  Country: US (occurrence: US)
  Receive Date: 20230908
  Receipt Date: 20231017
  Transmission Date: 20240110
  Serious: No
  Sender: FDA-Public Use
  Company Number: US-GE HEALTHCARE-2023CSU007261

PATIENT
  Age: 50 Year
  Sex: Female
  Weight: 53.968 kg

DRUGS (2)
  1. CERIANNA [Suspect]
     Active Substance: FLUOROESTRADIOL F-18
     Indication: Positron emission tomogram
     Dosage: 207.2 MBQ, SINGLE
     Route: 065
     Dates: start: 20230817, end: 20230817
  2. CERIANNA [Suspect]
     Active Substance: FLUOROESTRADIOL F-18
     Indication: Breast cancer female

REACTIONS (2)
  - Drug ineffective [Recovered/Resolved]
  - No adverse event [Recovered/Resolved]

NARRATIVE: CASE EVENT DATE: 20230817
